FAERS Safety Report 8070838-0 (Version None)
Quarter: 2012Q1

REPORT INFORMATION
  Report Type: 
  Country: None (occurrence: None)
  Receive Date: 20120125
  Receipt Date: 20120120
  Transmission Date: 20120608
  Serious: Yes (Other)
  Sender: FDA-Public Use
  Company Number: JP-GLAXOSMITHKLINE-B0764285A

PATIENT
  Sex: Female

DRUGS (14)
  1. FUROSEMIDE [Concomitant]
     Dosage: 40MG PER DAY
     Route: 048
  2. LISINOPRIL [Concomitant]
     Dosage: 5MG PER DAY
     Route: 048
  3. AMITRIPTYLINE HCL [Suspect]
     Dosage: 40MG PER DAY
     Route: 048
     Dates: start: 20111119
  4. CARVEDILOL [Concomitant]
     Dosage: 2.5MG PER DAY
     Route: 048
     Dates: start: 20111108
  5. ASPARA K [Concomitant]
     Dosage: 1200MG PER DAY
     Route: 048
  6. AMITRIPTYLINE HCL [Suspect]
     Indication: PRODUCT USED FOR UNKNOWN INDICATION
     Dosage: 140MG PER DAY
     Route: 048
     Dates: end: 20111118
  7. TORSEMIDE [Concomitant]
     Dosage: 4MG PER DAY
     Route: 048
  8. LANSOPRAZOLE [Concomitant]
     Dosage: 15MG PER DAY
     Route: 048
     Dates: start: 20111108
  9. PAXIL [Suspect]
     Indication: DEPRESSION
     Dosage: 40MG PER DAY
     Route: 048
  10. ALDACTONE [Concomitant]
     Dosage: 50MG PER DAY
     Route: 048
  11. WARFARIN SODIUM [Concomitant]
     Dosage: 2MG PER DAY
     Route: 048
  12. WARFARIN SODIUM [Concomitant]
     Dosage: 1.5MG PER DAY
     Route: 048
  13. FUROSEMIDE [Concomitant]
     Dosage: 40MG PER DAY
     Route: 048
  14. UNKNOWN DRUG [Concomitant]
     Dosage: 15MG PER DAY
     Route: 048
     Dates: start: 20111108

REACTIONS (5)
  - ELECTROCARDIOGRAM QT PROLONGED [None]
  - BUNDLE BRANCH BLOCK RIGHT [None]
  - ELECTROCARDIOGRAM T WAVE ABNORMAL [None]
  - QRS AXIS ABNORMAL [None]
  - ELECTROCARDIOGRAM QT SHORTENED [None]
